FAERS Safety Report 5016164-5 (Version None)
Quarter: 2006Q2

REPORT INFORMATION
  Report Type: 
  Country: None (occurrence: None)
  Receive Date: 20060601
  Receipt Date: 20060502
  Transmission Date: 20061013
  Serious: Yes (Other)
  Sender: FDA-Public Use
  Company Number: JP-MERCK-0605USA00419

PATIENT
  Age: 55 Year
  Sex: Male
  Weight: 57 kg

DRUGS (7)
  1. PRIMAXIN [Suspect]
     Indication: SPONDYLITIS
     Route: 041
     Dates: start: 20060414, end: 20060417
  2. PRIMAXIN [Suspect]
     Indication: EXTRADURAL ABSCESS
     Route: 041
     Dates: start: 20060414, end: 20060417
  3. AMIKACIN SULFATE [Suspect]
     Indication: SPONDYLITIS
     Route: 041
     Dates: start: 20060413, end: 20060417
  4. AMIKACIN SULFATE [Suspect]
     Indication: EXTRADURAL ABSCESS
     Route: 041
     Dates: start: 20060413, end: 20060417
  5. CEFMETAZON [Suspect]
     Indication: SPONDYLITIS
     Route: 041
     Dates: start: 20060413, end: 20060414
  6. CEFMETAZON [Suspect]
     Indication: EXTRADURAL ABSCESS
     Route: 041
     Dates: start: 20060413, end: 20060414
  7. VENOGLOBULIN-H [Concomitant]
     Route: 041

REACTIONS (1)
  - LIVER DISORDER [None]
